FAERS Safety Report 12391666 (Version 2)
Quarter: 2018Q1

REPORT INFORMATION
  Report Type: Spontaneous
  Country: US (occurrence: US)
  Receive Date: 20160522
  Receipt Date: 20180108
  Transmission Date: 20180508
  Serious: No
  Sender: FDA-Public Use
  Company Number: US-LUNDBECK-DKLU2012633

PATIENT
  Age: 78 Year
  Sex: Female

DRUGS (2)
  1. NORTHERA [Suspect]
     Active Substance: DROXIDOPA
     Indication: ORTHOSTATIC HYPOTENSION
     Route: 065
     Dates: start: 20160322
  2. NORTHERA [Suspect]
     Active Substance: DROXIDOPA
     Route: 065
     Dates: start: 20160309

REACTIONS (9)
  - Hypotension [Unknown]
  - Therapeutic response decreased [Unknown]
  - Hallucination [Unknown]
  - Hypotension [Unknown]
  - Orthostatic hypotension [Unknown]
  - Confusional state [Unknown]
  - Urinary tract infection [Unknown]
  - Gait disturbance [Unknown]
  - Upper respiratory tract infection [Unknown]

NARRATIVE: CASE EVENT DATE: 201604
